FAERS Safety Report 9214883 (Version 1)
Quarter: 2013Q2

REPORT INFORMATION
  Report Type: Spontaneous
  Country: US (occurrence: US)
  Receive Date: 20130405
  Receipt Date: 20130405
  Transmission Date: 20140414
  Serious: Yes (Hospitalization)
  Sender: FDA-Public Use
  Company Number: US-GLAXOSMITHKLINE-A1018906A

PATIENT
  Sex: Female

DRUGS (1)
  1. ADVAIR [Suspect]
     Indication: PRODUCT USED FOR UNKNOWN INDICATION
     Route: 055
     Dates: end: 20110117

REACTIONS (5)
  - Pneumonia [Unknown]
  - Sepsis [Unknown]
  - Oxygen saturation decreased [Unknown]
  - Arrhythmia [Unknown]
  - Herpes zoster [Unknown]
